FAERS Safety Report 4366456-8 (Version None)
Quarter: 2004Q2

REPORT INFORMATION
  Report Type: 
  Country: None (occurrence: None)
  Receive Date: 20040527
  Receipt Date: 20040406
  Transmission Date: 20050107
  Serious: Yes (Other)
  Sender: FDA-Public Use
  Company Number: US-BRISTOL-MYERS SQUIBB COMPANY-12552923

PATIENT
  Age: 46 Year
  Sex: Male
  Weight: 99 kg

DRUGS (6)
  1. ERBITUX [Suspect]
     Indication: COLON CANCER
     Route: 042
     Dates: start: 20040402, end: 20040402
  2. PROZAC [Concomitant]
  3. HYDROCODONE [Concomitant]
  4. REGLAN [Concomitant]
  5. HYZAAR [Concomitant]
  6. OXYCONTIN [Concomitant]

REACTIONS (1)
  - INFUSION RELATED REACTION [None]
